FAERS Safety Report 4742494-8 (Version None)
Quarter: 2005Q3

REPORT INFORMATION
  Report Type: 
  Country: None (occurrence: None)
  Receive Date: 20050808
  Receipt Date: 20050721
  Transmission Date: 20060218
  Serious: Yes (Other)
  Sender: FDA-Public Use
  Company Number: USA0507103562

PATIENT
  Age: 52 Year
  Sex: Female

DRUGS (2)
  1. ZYPREXA [Suspect]
     Dosage: 20 MG
  2. DEPAKOTE [Concomitant]

REACTIONS (2)
  - LEUKOPENIA [None]
  - NEUTROPHIL COUNT DECREASED [None]
